FAERS Safety Report 5688942-0 (Version None)
Quarter: 2008Q1

REPORT INFORMATION
  Report Type: 
  Country: None (occurrence: None)
  Receive Date: 20080331
  Receipt Date: 20001006
  Transmission Date: 20080703
  Serious: Yes (Disabling)
  Sender: FDA-Public Use
  Company Number: HQ0236524AUG2000

PATIENT
  Sex: Male

DRUGS (3)
  1. REFACTO [Suspect]
     Indication: FACTOR VIII DEFICIENCY
     Route: 042
     Dates: start: 20000711, end: 20000816
  2. REFACTO [Suspect]
     Route: 042
     Dates: start: 20000718, end: 20000721
  3. REFACTO [Suspect]
     Route: 042
     Dates: start: 20000724, end: 20000725

REACTIONS (2)
  - DRUG SPECIFIC ANTIBODY PRESENT [None]
  - ECCHYMOSIS [None]
